FAERS Safety Report 6088686-X (Version None)
Quarter: 2009Q1

REPORT INFORMATION
  Report Type: 
  Country: None (occurrence: None)
  Receive Date: 20090224
  Receipt Date: 20090216
  Transmission Date: 20090719
  Serious: Yes (Death, Other)
  Sender: FDA-Public Use
  Company Number: PL-SANOFI-SYNTHELABO-A01200901592

PATIENT
  Age: 54 Year
  Sex: Female

DRUGS (6)
  1. CETUXIMAB [Concomitant]
     Dosage: UNK
     Route: 065
     Dates: start: 20060501
  2. FLUOROURACIL [Suspect]
     Dosage: UNK
     Route: 065
  3. CALCIUM FOLINATE [Suspect]
     Dosage: UNK
     Route: 065
  4. IRINOTECAN HCL [Suspect]
     Dosage: UNK
     Route: 065
  5. OXALIPLATIN [Suspect]
     Indication: COLORECTAL CANCER
     Dosage: 130 MG/M2
     Route: 042
  6. CAPECITABINE [Suspect]
     Route: 048

REACTIONS (4)
  - COLORECTAL CANCER [None]
  - DERMATITIS ACNEIFORM [None]
  - JUGULAR VEIN THROMBOSIS [None]
  - PALMAR-PLANTAR ERYTHRODYSAESTHESIA SYNDROME [None]
